FAERS Safety Report 9219923 (Version 1)
Quarter: 2013Q2

REPORT INFORMATION
  Report Type: Spontaneous
  Country: US (occurrence: US)
  Receive Date: 20130409
  Receipt Date: 20130409
  Transmission Date: 20140414
  Serious: Yes (Hospitalization, Other)
  Sender: FDA-Public Use
  Company Number: PHEH2013US007870

PATIENT
  Sex: Female

DRUGS (2)
  1. OXCARBAZEPINE [Suspect]
  2. TRILEPTAL [Suspect]
     Dosage: 2 DF, DAILY

REACTIONS (1)
  - Convulsion [Unknown]
